FAERS Safety Report 4444657-8 (Version None)
Quarter: 2004Q3

REPORT INFORMATION
  Report Type: 
  Country: None (occurrence: None)
  Receive Date: 20040903
  Receipt Date: 20040818
  Transmission Date: 20050211
  Serious: Yes (Death)
  Sender: FDA-Public Use
  Company Number: 2004-DE-04438GD

PATIENT
  Age: 57 Year
  Sex: Female

DRUGS (2)
  1. LORAZEPAM [Suspect]
  2. OLANZAPINE [Suspect]

REACTIONS (2)
  - ACCIDENT [None]
  - ACCIDENTAL OVERDOSE [None]
